FAERS Safety Report 22137292 (Version 3)
Quarter: 2023Q2

REPORT INFORMATION
  Report Type: Spontaneous
  Country: US (occurrence: US)
  Receive Date: 20230325
  Receipt Date: 20230404
  Transmission Date: 20230722
  Serious: No
  Sender: FDA-Public Use
  Company Number: US-002147023-NVSC2023US067481

PATIENT
  Age: 73 Year
  Sex: Female
  Weight: 52.2 kg

DRUGS (3)
  1. COMBIPATCH [Suspect]
     Active Substance: ESTRADIOL\NORETHINDRONE ACETATE
     Indication: Hot flush
     Dosage: UNK UNK, BIW (0.05/0.14 MG, TWICE WEEKLY (EVERY TUESDAY EVENING AND SATURDAY MORNING))
     Route: 062
  2. COMBIPATCH [Suspect]
     Active Substance: ESTRADIOL\NORETHINDRONE ACETATE
     Indication: Night sweats
     Dosage: UNK UNK, BIW (0.05/0.14 MG) (ON AN UNSPECIFIED DATE IN 2023)
     Route: 062
  3. COMBIPATCH [Suspect]
     Active Substance: ESTRADIOL\NORETHINDRONE ACETATE
     Dosage: UNK UNK, BIW (ON AN UNSPECIFIED DATE IN 2023)
     Route: 062

REACTIONS (5)
  - Application site erythema [Not Recovered/Not Resolved]
  - Application site irritation [Not Recovered/Not Resolved]
  - Application site pruritus [Not Recovered/Not Resolved]
  - Application site reaction [Not Recovered/Not Resolved]
  - Device physical property issue [Not Recovered/Not Resolved]
